FAERS Safety Report 9267460 (Version 1)
Quarter: 2013Q2

REPORT INFORMATION
  Report Type: Spontaneous
  Country: FR (occurrence: FR)
  Receive Date: 20130502
  Receipt Date: 20130502
  Transmission Date: 20140414
  Serious: Yes (Hospitalization)
  Sender: FDA-Public Use
  Company Number: FR-BAYER-2013-053513

PATIENT
  Age: 79 Year
  Sex: Female

DRUGS (4)
  1. CIFLOX [Suspect]
     Indication: URINARY TRACT INFECTION
     Dosage: 200 MG, BID
     Route: 042
     Dates: start: 20130122, end: 20130218
  2. PREVISCAN [Suspect]
     Indication: ATRIAL FIBRILLATION
     Dosage: DAILY DOSE 10 MG
     Route: 048
     Dates: end: 20130128
  3. TIENAM [Suspect]
     Indication: LUNG DISORDER
     Dosage: 500 MG, TID
     Route: 042
     Dates: start: 20130122, end: 20130128
  4. KARDEGIC [Suspect]
     Indication: PERIPHERAL ARTERIAL OCCLUSIVE DISEASE
     Dosage: 75 MG, QD
     Route: 048
     Dates: start: 201212, end: 20130128

REACTIONS (3)
  - Haematoma [Recovered/Resolved]
  - Haemoglobin decreased [Recovered/Resolved]
  - International normalised ratio increased [Recovered/Resolved]
